FAERS Safety Report 17058504 (Version 1)
Quarter: 2019Q4

REPORT INFORMATION
  Report Type: Spontaneous
  Country: US (occurrence: US)
  Receive Date: 20191121
  Receipt Date: 20191121
  Transmission Date: 20200122
  Serious: Yes (Other)
  Sender: FDA-Public Use
  Company Number: US-PROCTER_AND_GAMBLE-GS19121190

PATIENT
  Sex: Female

DRUGS (1)
  1. DAYQUIL NOS [Suspect]
     Active Substance: ACETAMINOPHEN\BROMPHENIRAMINE\CHLORPHENIRAMINE\DEXTROMETHORPHAN\GUAIFENESIN\IBUPROFEN\PHENYLEPHRINE\PHENYLPROPANOLAMINE\PSEUDOEPHEDRINE
     Route: 048

REACTIONS (1)
  - Loss of consciousness [Unknown]
